FAERS Safety Report 18786051 (Version 2)
Quarter: 2021Q4

REPORT INFORMATION
  Report Type: Report from Study
  Country: NL (occurrence: None)
  Receive Date: 20210126
  Receipt Date: 20211228
  Transmission Date: 20220304
  Serious: Yes (Hospitalization, Other)
  Sender: FDA-Public Use
  Company Number: NL-ROCHE-2756439

PATIENT

DRUGS (1)
  1. ATEZOLIZUMAB [Suspect]
     Active Substance: ATEZOLIZUMAB
     Indication: Triple negative breast cancer
     Dosage: 20/DEC/2020, THE PATIENT RECEIVED LAST DOSE OF ATEZOLIZUMAB.
     Route: 065

REACTIONS (3)
  - Dehydration [Unknown]
  - Pneumonitis [Unknown]
  - Constipation [Unknown]

NARRATIVE: CASE EVENT DATE: 20210120
